FAERS Safety Report 12771377 (Version 2)
Quarter: 2018Q1

REPORT INFORMATION
  Report Type: Spontaneous
  Country: FR (occurrence: FR)
  Receive Date: 20160922
  Receipt Date: 20180126
  Transmission Date: 20180508
  Serious: Yes (Other)
  Sender: FDA-Public Use
  Company Number: FR-OTSUKA-2016_021173

PATIENT
  Sex: Female
  Weight: 65 kg

DRUGS (2)
  1. RIVOTRIL [Concomitant]
     Active Substance: CLONAZEPAM
     Indication: EPILEPSY
     Dosage: UNK
     Route: 048
  2. ABILIFY MAINTENA [Suspect]
     Active Substance: ARIPIPRAZOLE
     Indication: AFFECTIVE DISORDER
     Dosage: 300 MG, EVERY 28 DAYS
     Route: 030

REACTIONS (3)
  - Off label use [Unknown]
  - Epilepsy [Not Recovered/Not Resolved]
  - Incorrect dose administered [Unknown]
